FAERS Safety Report 24956211 (Version 2)
Quarter: 2025Q3

REPORT INFORMATION
  Report Type: Report from Study
  Country: US (occurrence: US)
  Receive Date: 20250211
  Receipt Date: 20250803
  Transmission Date: 20251021
  Serious: Yes (Hospitalization)
  Sender: ALEXION PHARMACEUTICALS
  Company Number: 202501USA027688US

PATIENT
  Sex: Male

DRUGS (2)
  1. OSIMERTINIB [Suspect]
     Active Substance: OSIMERTINIB
     Indication: Lung carcinoma cell type unspecified stage 0
     Dosage: 40 MILLIGRAM, QD
     Dates: start: 202501
  2. OSIMERTINIB [Suspect]
     Active Substance: OSIMERTINIB
     Indication: Prostate cancer
     Dosage: 80 MILLIGRAM, QD
     Dates: start: 202501

REACTIONS (4)
  - Abscess [Unknown]
  - Weight increased [Unknown]
  - Swelling [Unknown]
  - Product dose omission issue [Unknown]
